FAERS Safety Report 22066815 (Version 1)
Quarter: 2023Q1

REPORT INFORMATION
  Report Type: Spontaneous
  Country: DE (occurrence: DE)
  Receive Date: 20230306
  Receipt Date: 20230306
  Transmission Date: 20230417
  Serious: Yes (Other)
  Sender: FDA-Public Use
  Company Number: DE-DCGMA-23200488

PATIENT
  Age: 3 Year
  Sex: Female
  Weight: 10.4 kg

DRUGS (4)
  1. PIPERACILLIN AND TAZOBACTAM [Suspect]
     Active Substance: PIPERACILLIN SODIUM\TAZOBACTAM SODIUM
     Indication: Escherichia infection
     Dosage: 1120 MG 3 X DAILY?3360 MG
     Route: 042
     Dates: start: 20221128, end: 20221201
  2. CEFOTAXIME [Suspect]
     Active Substance: CEFOTAXIME SODIUM
     Indication: Escherichia infection
     Dosage: 750 MG 3X DAILY?2250 MG
     Route: 042
     Dates: start: 20221128, end: 20221201
  3. METAMIZOLE [Suspect]
     Active Substance: METAMIZOLE
     Indication: Pyrexia
     Route: 042
     Dates: start: 20221128, end: 20221201
  4. ALBUTEROL [Concomitant]
     Active Substance: ALBUTEROL
     Indication: Product used for unknown indication
     Dosage: 2 STROKES 3 TIMES A DAY
     Dates: start: 20221127, end: 20221206

REACTIONS (2)
  - Thrombocytopenia [Recovered/Resolved]
  - Agranulocytosis [Recovered/Resolved]

NARRATIVE: CASE EVENT DATE: 20221201
